FAERS Safety Report 8799007 (Version 1)
Quarter: 2012Q4

REPORT INFORMATION
  Report Type: 
  Country: AR (occurrence: AR)
  Receive Date: 20120920
  Receipt Date: 20120920
  Transmission Date: 20130627
  Serious: Yes (Other)
  Sender: FDA-Public Use
  Company Number: AR-NOVOPROD-359781

PATIENT
  Age: 51 Year
  Sex: Female

DRUGS (3)
  1. VICTOZA [Suspect]
     Indication: PRODUCT USED FOR UNKNOWN INDICATION
     Dosage: 0.6 IU, qd
     Route: 058
  2. VICTOZA [Suspect]
     Dosage: 1.2 mg, qd
     Route: 058
  3. VICTOZA [Suspect]
     Dosage: 1.8 mg, qd
     Route: 058

REACTIONS (1)
  - Vertigo [Not Recovered/Not Resolved]
